FAERS Safety Report 11556293 (Version 3)
Quarter: 2015Q4

REPORT INFORMATION
  Report Type: Report from Study
  Country: TW (occurrence: TW)
  Receive Date: 20150925
  Receipt Date: 20151026
  Transmission Date: 20160304
  Serious: Yes (Life-Threatening, Hospitalization, Other)
  Sender: FDA-Public Use
  Company Number: TW-INCYTE CORPORATION-2015IN004717

PATIENT
  Age: 66 Year
  Sex: Female
  Weight: 58.5 kg

DRUGS (5)
  1. AZITHROMYCIN [Concomitant]
     Active Substance: AZITHROMYCIN ANHYDROUS
     Indication: PRODUCT USED FOR UNKNOWN INDICATION
     Dosage: 250 MG
     Route: 048
     Dates: start: 20150909, end: 20150911
  2. CEFTRIAXONE. [Concomitant]
     Active Substance: CEFTRIAXONE
     Indication: PRODUCT USED FOR UNKNOWN INDICATION
     Dosage: 1 G
     Route: 042
     Dates: start: 20150909
  3. JAKAFI [Suspect]
     Active Substance: RUXOLITINIB
     Dosage: 10 MG/DAY
     Route: 048
  4. JAKAFI [Suspect]
     Active Substance: RUXOLITINIB
     Indication: MYELOFIBROSIS
     Dosage: 20 MG/DAY
     Route: 048
     Dates: start: 20140718, end: 20150306
  5. JAKAFI [Suspect]
     Active Substance: RUXOLITINIB
     Dosage: 30 MG/DAY
     Route: 048
     Dates: start: 20150306

REACTIONS (12)
  - Pleural effusion [Unknown]
  - Kidney small [Unknown]
  - Acute kidney injury [Recovering/Resolving]
  - Exostosis [Unknown]
  - Platelet count decreased [Unknown]
  - Cough [Unknown]
  - Pneumocystis jirovecii pneumonia [Recovered/Resolved]
  - Aortic disorder [Unknown]
  - Lymphadenopathy mediastinal [Unknown]
  - Anaemia [Unknown]
  - Cardiomegaly [Unknown]
  - Cholelithiasis [Unknown]

NARRATIVE: CASE EVENT DATE: 20150909
